FAERS Safety Report 6647012-5 (Version None)
Quarter: 2010Q1

REPORT INFORMATION
  Report Type: 
  Country: None (occurrence: None)
  Receive Date: 20100323
  Receipt Date: 20091223
  Transmission Date: 20100710
  Serious: No
  Sender: FDA-Public Use
  Company Number: A0837080A

PATIENT
  Age: 34 Year
  Sex: Female

DRUGS (3)
  1. LAMICTAL XR [Suspect]
     Dosage: 400MG PER DAY
     Route: 048
     Dates: start: 20090701
  2. TYLENOL-500 [Concomitant]
  3. KEPPRA XR [Concomitant]

REACTIONS (3)
  - BURNING SENSATION [None]
  - ERYTHEMA OF EYELID [None]
  - SKIN EXFOLIATION [None]
